FAERS Safety Report 24575661 (Version 2)
Quarter: 2025Q2

REPORT INFORMATION
  Report Type: Spontaneous
  Country: US (occurrence: US)
  Receive Date: 20241104
  Receipt Date: 20250531
  Transmission Date: 20250716
  Serious: No
  Sender: LUPIN
  Company Number: US-LUPIN PHARMACEUTICALS INC.-2024-10732

PATIENT
  Age: 62 Year
  Weight: 42.177 kg

DRUGS (1)
  1. ALBUTEROL SULFATE [Suspect]
     Active Substance: ALBUTEROL SULFATE
     Indication: Chronic obstructive pulmonary disease
     Dosage: UNK, QD (5 PUFFS EVERY DAY)

REACTIONS (3)
  - Wrong technique in product usage process [Unknown]
  - Device occlusion [Unknown]
  - No adverse event [Unknown]
